FAERS Safety Report 9730886 (Version 1)
Quarter: 2013Q4

REPORT INFORMATION
  Report Type: Spontaneous
  Country: US (occurrence: US)
  Receive Date: 20131205
  Receipt Date: 20131205
  Transmission Date: 20140711
  Serious: Yes (Other)
  Sender: FDA-Public Use
  Company Number: US-B.I. PHARMACEUTICALS,INC./RIDGEFIELD-2013-BI-39690GD

PATIENT
  Age: 80 Year
  Sex: Male

DRUGS (1)
  1. DABIGATRAN [Suspect]

REACTIONS (13)
  - Cardiac tamponade [Unknown]
  - Cardiac disorder [Unknown]
  - Pericardial haemorrhage [Unknown]
  - Pericardial effusion [Unknown]
  - Dyspnoea [Unknown]
  - Hypotension [Unknown]
  - Tachycardia [Unknown]
  - Atrial flutter [Unknown]
  - Right ventricular dysfunction [Unknown]
  - Heart alternation [Unknown]
  - Electrocardiogram QRS complex abnormal [Unknown]
  - Blood pressure systolic inspiratory decreased [Unknown]
  - Venous pressure jugular increased [Unknown]
